FAERS Safety Report 4501932-6 (Version None)
Quarter: 2004Q4

REPORT INFORMATION
  Report Type: 
  Country: None (occurrence: None)
  Receive Date: 20041115
  Receipt Date: 20041115
  Transmission Date: 20050328
  Serious: Yes (Hospitalization)
  Sender: FDA-Public Use
  Company Number: None

PATIENT
  Age: 69 Year
  Sex: Male
  Weight: 87.0906 kg

DRUGS (2)
  1. COUMADIN [Suspect]
     Indication: THROMBOSIS PROPHYLAXIS
     Dosage: 5MG   DAILY    ORAL
     Route: 048
     Dates: start: 20040701, end: 20041020
  2. METRONIDAZOLE [Suspect]
     Indication: CLOSTRIDIUM COLITIS
     Dosage: 500MG  Q6H    ORAL
     Route: 048
     Dates: start: 20041015, end: 20041020

REACTIONS (1)
  - INTERNATIONAL NORMALISED RATIO INCREASED [None]
